FAERS Safety Report 14728121 (Version 1)
Quarter: 2018Q2

REPORT INFORMATION
  Report Type: Report from Study
  Country: US (occurrence: US)
  Receive Date: 20180406
  Receipt Date: 20180406
  Transmission Date: 20180711
  Serious: Yes (Hospitalization)
  Sender: FDA-Public Use
  Company Number: US-JNJFOC-20180405190

PATIENT
  Sex: Male

DRUGS (24)
  1. ATROVENT [Concomitant]
     Active Substance: IPRATROPIUM BROMIDE
  2. PREDNISOLONE. [Concomitant]
     Active Substance: PREDNISOLONE
  3. ACETAMINOPHEN. [Concomitant]
     Active Substance: ACETAMINOPHEN
  4. AZITHROMYCIN ANHYDROUS. [Concomitant]
     Active Substance: AZITHROMYCIN ANHYDROUS
  5. BACITRACIN. [Concomitant]
     Active Substance: BACITRACIN
  6. FLUCONAZOLE. [Concomitant]
     Active Substance: FLUCONAZOLE
  7. XIPAMIDE [Concomitant]
     Active Substance: XIPAMIDE
  8. ALBUTEROL. [Concomitant]
     Active Substance: ALBUTEROL
  9. CHOLECALCIFEROL [Concomitant]
     Active Substance: CHOLECALCIFEROL
  10. PRILOSEC [Concomitant]
     Active Substance: OMEPRAZOLE MAGNESIUM
  11. MELATONIN [Concomitant]
     Active Substance: MELATONIN
  12. BENZYLPENICILLIN [Concomitant]
     Active Substance: PENICILLIN G
  13. SIROLIMUS. [Concomitant]
     Active Substance: SIROLIMUS
  14. IMBRUVICA [Suspect]
     Active Substance: IBRUTINIB
     Indication: GRAFT VERSUS HOST DISEASE
     Route: 048
     Dates: start: 20180127
  15. CLONIDINE. [Concomitant]
     Active Substance: CLONIDINE
  16. PHENOBARBITAL. [Concomitant]
     Active Substance: PHENOBARBITAL
  17. SODIUM CHLORIDE. [Concomitant]
     Active Substance: SODIUM CHLORIDE
  18. ACYCLOVIR. [Concomitant]
     Active Substance: ACYCLOVIR
  19. FOLIC ACID. [Concomitant]
     Active Substance: FOLIC ACID
  20. FLOVENT [Concomitant]
     Active Substance: FLUTICASONE PROPIONATE
  21. LABETALOL [Concomitant]
     Active Substance: LABETALOL\LABETALOL HYDROCHLORIDE
  22. SINGULAIR [Concomitant]
     Active Substance: MONTELUKAST SODIUM
  23. AMLODIPINE [Concomitant]
     Active Substance: AMLODIPINE BESYLATE
  24. TERBINAFINE. [Concomitant]
     Active Substance: TERBINAFINE

REACTIONS (3)
  - Asthenia [Unknown]
  - Speech disorder [Unknown]
  - Bone marrow transplant [Unknown]
